FAERS Safety Report 4850152-4 (Version None)
Quarter: 2005Q4

REPORT INFORMATION
  Report Type: 
  Country: None (occurrence: None)
  Receive Date: 20051123
  Receipt Date: 20050706
  Transmission Date: 20060501
  Serious: Yes (Other)
  Sender: FDA-Public Use
  Company Number: 2005098079

PATIENT

DRUGS (1)
  1. LIPITOR [Suspect]
     Indication: ILL-DEFINED DISORDER
     Dosage: (40 MG ) ORAL
     Route: 048
     Dates: start: 20040401

REACTIONS (6)
  - ASTHENIA [None]
  - DIABETES MELLITUS [None]
  - JOINT STIFFNESS [None]
  - MYALGIA [None]
  - RENAL IMPAIRMENT [None]
  - RHABDOMYOLYSIS [None]
